FAERS Safety Report 20416991 (Version 1)
Quarter: 2022Q1

REPORT INFORMATION
  Report Type: Spontaneous
  Country: GB (occurrence: GB)
  Receive Date: 20220202
  Receipt Date: 20220202
  Transmission Date: 20220423
  Serious: Yes (Other)
  Sender: FDA-Public Use
  Company Number: None

PATIENT
  Age: 44 Year
  Sex: Female

DRUGS (1)
  1. CITALOPRAM [Suspect]
     Active Substance: CITALOPRAM HYDROBROMIDE
     Indication: Ill-defined disorder
     Dosage: 40 MILLIGRAM, QD (40MG ONCE DAILY)
     Route: 048

REACTIONS (3)
  - Cardiac flutter [Unknown]
  - Product dispensing error [Unknown]
  - Incorrect dose administered [Unknown]
